FAERS Safety Report 7592872-7 (Version None)
Quarter: 2011Q3

REPORT INFORMATION
  Report Type: 
  Country: None (occurrence: None)
  Receive Date: 20110706
  Receipt Date: 20110627
  Transmission Date: 20111222
  Serious: Yes (Death)
  Sender: FDA-Public Use
  Company Number: BR-BAYER-201013720LA

PATIENT
  Age: 51 Year
  Sex: Male
  Weight: 81 kg

DRUGS (1)
  1. NEXAVAR [Suspect]
     Indication: HEPATIC NEOPLASM MALIGNANT
     Dosage: 200 MG, BID
     Route: 048
     Dates: start: 20091222

REACTIONS (5)
  - DEATH [None]
  - DIARRHOEA [None]
  - HYPERAESTHESIA [None]
  - HYPERKERATOSIS [None]
  - SKIN EXFOLIATION [None]
